FAERS Safety Report 5116959-3 (Version None)
Quarter: 2006Q3

REPORT INFORMATION
  Report Type: 
  Country: None (occurrence: None)
  Receive Date: 20060925
  Receipt Date: 20060913
  Transmission Date: 20061208
  Serious: Yes (Other)
  Sender: FDA-Public Use
  Company Number: 147603USA

PATIENT
  Age: 26 Year
  Sex: Female

DRUGS (1)
  1. CITALOPRAM HYDROBROMIDE [Suspect]
     Dosage: 20 MG

REACTIONS (3)
  - BIPOLAR II DISORDER [None]
  - DISEASE RECURRENCE [None]
  - MAJOR DEPRESSION [None]
